FAERS Safety Report 19538385 (Version 2)
Quarter: 2021Q3

REPORT INFORMATION
  Report Type: Spontaneous
  Country: US (occurrence: US)
  Receive Date: 20210713
  Receipt Date: 20210727
  Transmission Date: 20211014
  Serious: Yes (Other)
  Sender: FDA-Public Use
  Company Number: US-APOTEX-2021AP017015

PATIENT
  Sex: Female

DRUGS (2)
  1. CRESTOR [Concomitant]
     Active Substance: ROSUVASTATIN CALCIUM
     Indication: BLOOD CHOLESTEROL
     Dosage: 10 MILLIGRAM, QD
     Route: 065
  2. LISINOPRIL [LISINOPRIL DIHYDRATE] [Concomitant]
     Active Substance: LISINOPRIL
     Indication: HYPERTENSION
     Dosage: 20 MILLIGRAM, QD
     Route: 065

REACTIONS (5)
  - Impaired healing [Recovered/Resolved]
  - Overdose [Unknown]
  - Thrombosis [Recovered/Resolved]
  - Haematoma [Recovered/Resolved]
  - Blood blister [Recovered/Resolved]

NARRATIVE: CASE EVENT DATE: 202101
